FAERS Safety Report 13587254 (Version 3)
Quarter: 2017Q2

REPORT INFORMATION
  Report Type: Report from Study
  Country: US (occurrence: HU)
  Receive Date: 20170526
  Receipt Date: 20170613
  Transmission Date: 20170830
  Serious: Yes (Death, Hospitalization, Other)
  Sender: FDA-Public Use
  Company Number: US-SUNOVION-2017SUN002185

PATIENT

DRUGS (16)
  1. MEDROL [Concomitant]
     Active Substance: METHYLPREDNISOLONE
  2. QUAMATEL [Concomitant]
     Active Substance: FAMOTIDINE
  3. AUGMENTINE [Concomitant]
     Active Substance: AMOXICILLIN\CLAVULANATE POTASSIUM
  4. CLEXANE [Concomitant]
     Active Substance: ENOXAPARIN SODIUM
  5. PANTOPRAZOLE [Concomitant]
     Active Substance: PANTOPRAZOLE
  6. VENTOLINE [Concomitant]
     Active Substance: ALBUTEROL
  7. OXYGEN. [Concomitant]
     Active Substance: OXYGEN
  8. RINDEX [Concomitant]
  9. KLION [Concomitant]
  10. KCL [Concomitant]
     Active Substance: POTASSIUM CHLORIDE
  11. GLYCOPYRROLATE. [Suspect]
     Active Substance: GLYCOPYRROLATE
     Indication: CHRONIC OBSTRUCTIVE PULMONARY DISEASE
     Dosage: 1 DF, QD
     Route: 055
     Dates: start: 21070201
  12. NACL 0.9% [Concomitant]
     Active Substance: SODIUM CHLORIDE
     Dosage: UNK
  13. FUROSEMIDE. [Concomitant]
     Active Substance: FUROSEMIDE
  14. THEOSPIREX [Concomitant]
     Active Substance: THEOPHYLLINE ANHYDROUS
  15. FOSTER [Concomitant]
     Active Substance: BECLOMETHASONE\FORMOTEROL
  16. BRINALDIX [Concomitant]

REACTIONS (4)
  - Respiratory failure [Not Recovered/Not Resolved]
  - Cardiac arrest [Unknown]
  - Respiratory arrest [Not Recovered/Not Resolved]
  - Pneumonia [Fatal]

NARRATIVE: CASE EVENT DATE: 20170302
